FAERS Safety Report 19045568 (Version 2)
Quarter: 2021Q2

REPORT INFORMATION
  Report Type: Report from Study
  Country: MY (occurrence: MY)
  Receive Date: 20210322
  Receipt Date: 20210629
  Transmission Date: 20210717
  Serious: Yes (Hospitalization)
  Sender: FDA-Public Use
  Company Number: MY-SEAGEN-2021SGN01533

PATIENT
  Sex: Female

DRUGS (1)
  1. BRENTUXIMAB VEDOTIN [Suspect]
     Active Substance: BRENTUXIMAB VEDOTIN
     Indication: HODGKIN^S DISEASE REFRACTORY
     Dosage: 100 MILLIGRAM, Q3WEEKS
     Route: 042
     Dates: start: 20200316

REACTIONS (2)
  - Blood pressure decreased [Unknown]
  - Dyspnoea [Unknown]
